FAERS Safety Report 5295890-7 (Version None)
Quarter: 2007Q2

REPORT INFORMATION
  Report Type: 
  Country: None (occurrence: None)
  Receive Date: 20070413
  Receipt Date: 20070402
  Transmission Date: 20071010
  Serious: Yes (Other)
  Sender: FDA-Public Use
  Company Number: PHEH2007US03907

PATIENT
  Sex: Female

DRUGS (4)
  1. HERCEPTIN [Concomitant]
  2. FASLODEX [Concomitant]
  3. NAVELBINE [Concomitant]
  4. ZOMETA [Suspect]
     Indication: BREAST CANCER
     Dosage: 4 MG Q4WEEKS
     Dates: start: 20040801, end: 20070219

REACTIONS (3)
  - ABSCESS DRAINAGE [None]
  - PAIN [None]
  - TOOTH ABSCESS [None]
